FAERS Safety Report 4463367-4 (Version None)
Quarter: 2004Q3

REPORT INFORMATION
  Report Type: 
  Country: None (occurrence: None)
  Receive Date: 20040928
  Receipt Date: 20040910
  Transmission Date: 20050211
  Serious: Yes (Life-Threatening)
  Sender: FDA-Public Use
  Company Number: 20040700346

PATIENT
  Sex: Female

DRUGS (1)
  1. SUPRANE [Suspect]

REACTIONS (4)
  - CARDIAC ARREST [None]
  - DEVICE FAILURE [None]
  - MYDRIASIS [None]
  - OVERDOSE [None]
